FAERS Safety Report 21882533 (Version 1)
Quarter: 2023Q1

REPORT INFORMATION
  Report Type: Report from Study
  Country: US (occurrence: US)
  Receive Date: 20230119
  Receipt Date: 20230119
  Transmission Date: 20230417
  Serious: No
  Sender: FDA-Public Use
  Company Number: US-Accord-263718

PATIENT
  Sex: Male
  Weight: 103.87 kg

DRUGS (1)
  1. CLOZAPINE [Suspect]
     Active Substance: CLOZAPINE
     Indication: Schizophrenia
     Dosage: 100MG 3 TABLETS PO AT NIGHT
     Dates: start: 202202, end: 202202

REACTIONS (1)
  - Treatment noncompliance [Unknown]
